FAERS Safety Report 9073665 (Version 1)
Quarter: 2013Q1

REPORT INFORMATION
  Report Type: Report from Study
  Country: TR (occurrence: TR)
  Receive Date: 20130216
  Receipt Date: 20130216
  Transmission Date: 20140127
  Serious: Yes (Other)
  Sender: FDA-Public Use
  Company Number: TR-US-EMD SERONO, INC.-7193722

PATIENT
  Age: 25 Year
  Sex: Female
  Weight: 57 kg

DRUGS (1)
  1. REBIF [Suspect]
     Indication: MULTIPLE SCLEROSIS
     Route: 058
     Dates: start: 201004

REACTIONS (3)
  - Abortion spontaneous [Recovering/Resolving]
  - Maternal exposure during pregnancy [Recovered/Resolved]
  - Inappropriate schedule of drug administration [Unknown]
